FAERS Safety Report 14145758 (Version 1)
Quarter: 2017Q4

REPORT INFORMATION
  Report Type: Spontaneous
  Country: GB (occurrence: GB)
  Receive Date: 20171031
  Receipt Date: 20171031
  Transmission Date: 20180321
  Serious: Yes (Disabling, Other)
  Sender: FDA-Public Use
  Company Number: GB-PFIZER INC-2017464582

PATIENT
  Age: 82 Year
  Sex: Female
  Weight: 55 kg

DRUGS (13)
  1. NITROFURANTOIN. [Concomitant]
     Active Substance: NITROFURANTOIN
     Dosage: 1 DF, 2X/DAY
     Dates: start: 20170813, end: 20170816
  2. PARACETAMOL [Concomitant]
     Active Substance: ACETAMINOPHEN
     Dosage: AT 20 ML AS NEEDED (EVERY 4 TO 6 HOURS WHEN NECESSARY)
     Dates: start: 20170714
  3. BONJELA [Concomitant]
     Active Substance: CETALKONIUM CHLORIDE\CHOLINE SALICYLATE\MENTHOL
     Dosage: APPLY EVERY 4 HOURS
     Dates: start: 20171003, end: 20171004
  4. MORPHINE SULFATE. [Concomitant]
     Active Substance: MORPHINE SULFATE
     Indication: PAIN
     Dosage: 2.5 MG AS NEEDED
     Route: 048
     Dates: start: 20170714, end: 20170720
  5. GABAPENTIN. [Suspect]
     Active Substance: GABAPENTIN
     Dosage: UNK
     Dates: start: 20170731
  6. FERROUS FUMARATE [Concomitant]
     Active Substance: FERROUS FUMARATE
     Dosage: 1 DF, 3X/DAY
     Dates: start: 20170824
  7. CYCLIZINE [Concomitant]
     Active Substance: CYCLIZINE
     Dosage: 1 DF AS NEEDED (UP TO THREE TIMES A DAY WHEN NEEDED)
     Dates: start: 20170714
  8. ENSURE [Concomitant]
     Active Substance: AMINO ACIDS\DEXTROSE\ELECTROLYTES NOS\SOYBEAN OIL\VITAMINS
     Dosage: 2 DF ONCE A DAY (TAKE AT BREASKFAST AND LUNCH TIME AS ADVISED)
     Dates: start: 20170714
  9. LEVOTHYROXINE. [Concomitant]
     Active Substance: LEVOTHYROXINE
     Dosage: 1 DF ONCE A DAY (EACH MORNING)
     Dates: start: 20111026
  10. GAVISCON ADVANCE [Concomitant]
     Active Substance: POTASSIUM BICARBONATE\SODIUM ALGINATE
     Dosage: 5 ML (ONE OR TWO 5ML SPOONFULS TO BE TAKEN AFTER MEAL)
     Dates: start: 20170714, end: 20170720
  11. SENNA [Concomitant]
     Active Substance: SENNA LEAF\SENNOSIDES\SENNOSIDES A AND B
     Dosage: AT NIGHT
     Dates: start: 20170714
  12. SERTRALINE [Concomitant]
     Active Substance: SERTRALINE HYDROCHLORIDE
     Dosage: 1 DF, 1X/DAY
     Dates: start: 20170120
  13. PROMETHAZINE HYDROCHLORIDE. [Concomitant]
     Active Substance: PROMETHAZINE HYDROCHLORIDE
     Dosage: TAKE 1-2 TABLETS TO BE TAKEN EACH NIGHT
     Dates: start: 20170808

REACTIONS (1)
  - Nightmare [Recovered/Resolved]

NARRATIVE: CASE EVENT DATE: 20171018
